FAERS Safety Report 7332082-1 (Version None)
Quarter: 2011Q1

REPORT INFORMATION
  Report Type: 
  Country: None (occurrence: None)
  Receive Date: 20110304
  Receipt Date: 20110225
  Transmission Date: 20110831
  Serious: No
  Sender: FDA-Public Use
  Company Number: US-BIOGENIDEC-2011BI007726

PATIENT
  Age: 61 Year
  Sex: Female

DRUGS (2)
  1. AVONEX [Suspect]
     Indication: MULTIPLE SCLEROSIS
     Route: 030
     Dates: start: 20090519
  2. AVONEX [Suspect]
     Route: 030
     Dates: start: 20020902, end: 20051004

REACTIONS (6)
  - NASAL CONGESTION [None]
  - RESPIRATORY TRACT IRRITATION [None]
  - DYSPHAGIA [None]
  - THROAT IRRITATION [None]
  - EAR PAIN [None]
  - EAR PRURITUS [None]
